FAERS Safety Report 19668514 (Version 2)
Quarter: 2021Q3

REPORT INFORMATION
  Report Type: Spontaneous
  Country: CN (occurrence: CN)
  Receive Date: 20210806
  Receipt Date: 20210819
  Transmission Date: 20211014
  Serious: Yes (Hospitalization)
  Sender: FDA-Public Use
  Company Number: CN-PFIZER INC-202100963772

PATIENT
  Age: 57 Year
  Sex: Female
  Weight: 59 kg

DRUGS (5)
  1. GLUCOSE [Concomitant]
     Active Substance: DEXTROSE
     Indication: VEHICLE SOLUTION USE
     Dosage: 250.000 ML, 1X/DAY
     Route: 041
     Dates: start: 20210609, end: 20210619
  2. ACLARUBICIN HCL [Suspect]
     Active Substance: ACLARUBICIN HYDROCHLORIDE
     Indication: ACUTE LEUKAEMIA
     Dosage: 10.000 MG, 1X/DAY
     Route: 041
     Dates: start: 20210609, end: 20210619
  3. ETOPOSIDE. [Suspect]
     Active Substance: ETOPOSIDE
     Indication: ACUTE LEUKAEMIA
     Dosage: 50.000 MG, 1X/DAY
     Route: 041
     Dates: start: 20210609, end: 20210619
  4. CYTARABINE. [Suspect]
     Active Substance: CYTARABINE
     Indication: ACUTE LEUKAEMIA
     Dosage: 100.000 MG, 1X/DAY
     Route: 041
     Dates: start: 20210609, end: 20210619
  5. SODIUM CHLORIDE. [Concomitant]
     Active Substance: SODIUM CHLORIDE
     Indication: VEHICLE SOLUTION USE
     Dosage: 100.000 ML, 1X/DAY
     Route: 041
     Dates: start: 20210609, end: 20210619

REACTIONS (3)
  - Full blood count decreased [Not Recovered/Not Resolved]
  - Asthenia [Not Recovered/Not Resolved]
  - Pyrexia [Not Recovered/Not Resolved]

NARRATIVE: CASE EVENT DATE: 20210716
